FAERS Safety Report 5120478-8 (Version None)
Quarter: 2006Q4

REPORT INFORMATION
  Report Type: 
  Country: None (occurrence: None)
  Receive Date: 20061002
  Receipt Date: 20060912
  Transmission Date: 20070319
  Serious: Yes (Hospitalization)
  Sender: FDA-Public Use
  Company Number: GR200607004716

PATIENT
  Age: 57 Year
  Sex: Female

DRUGS (1)
  1. RALOXIFENE HCL [Suspect]
     Indication: OSTEOPOROSIS
     Dosage: 60 MG, DAILY (1/D), ORAL
     Route: 048
     Dates: start: 20040101, end: 20060601

REACTIONS (3)
  - ALCOHOL USE [None]
  - DRUG DOSE OMISSION [None]
  - ISCHAEMIC STROKE [None]
